FAERS Safety Report 11269542 (Version 1)
Quarter: 2015Q3

REPORT INFORMATION
  Report Type: Spontaneous
  Country: FR (occurrence: None)
  Receive Date: 20150710
  Receipt Date: 20150710
  Transmission Date: 20151125
  Serious: Yes (Hospitalization)
  Sender: FDA-Public Use
  Company Number: CO-KX-FR-2015-005

PATIENT
  Age: 61 Year
  Sex: Male

DRUGS (5)
  1. IMOVANE (UNKNOWN) (ZOPICLONE) [Concomitant]
  2. ACUPAN (UNKNOWN) (NEFOPAM HYDROCHLORIDE) [Concomitant]
  3. ALPRAZOLAM (UNKNOWN) (ALPRAZOLAM) [Concomitant]
  4. LYRICA (UNKNOWN) (PREGABALIN) [Concomitant]
  5. KAYEXALATE [Suspect]
     Active Substance: SODIUM POLYSTYRENE SULFONATE
     Indication: HYPERKALAEMIA
     Dates: start: 20150515

REACTIONS (2)
  - Large intestinal obstruction [None]
  - Faecaloma [None]

NARRATIVE: CASE EVENT DATE: 20150515
